FAERS Safety Report 10302565 (Version 1)
Quarter: 2014Q3

REPORT INFORMATION
  Report Type: Spontaneous
  Country: US (occurrence: None)
  Receive Date: 20140709
  Receipt Date: 20140709
  Transmission Date: 20150326
  Serious: Yes (Other)
  Sender: FDA-Public Use
  Company Number: AUR-APL-2014-07221

PATIENT
  Age: 29 Year
  Sex: Male

DRUGS (7)
  1. LEVETIRACETAM. [Suspect]
     Active Substance: LEVETIRACETAM
     Indication: CONVULSION
  2. PHENOBARBITAL (PHENOBARBITAL) [Concomitant]
     Active Substance: PHENOBARBITAL
  3. VENLAFAXINE [Suspect]
     Active Substance: VENLAFAXINE HYDROCHLORIDE
     Indication: CATAPLEXY
  4. LEVETIRACETAM. [Suspect]
     Active Substance: LEVETIRACETAM
     Indication: CATAPLEXY
  5. VALPROIC ACID (VALPROIC ACID) [Concomitant]
     Active Substance: VALPROIC ACID
  6. CLOMIPRAMINE (CLOMIPRAMINE) [Concomitant]
     Active Substance: CLOMIPRAMINE
  7. VENLAFAXINE [Suspect]
     Active Substance: VENLAFAXINE HYDROCHLORIDE
     Indication: CONVULSION

REACTIONS (12)
  - Circulatory collapse [None]
  - Asthenia [None]
  - Sleep apnoea syndrome [None]
  - Psychogenic seizure [None]
  - Cataplexy [None]
  - Paranoia [None]
  - Dyspnoea [None]
  - Narcolepsy [None]
  - Somnolence [None]
  - Hallucination, auditory [None]
  - Tongue disorder [None]
  - Snoring [None]
